FAERS Safety Report 8916785 (Version 2)
Quarter: 2012Q4

REPORT INFORMATION
  Report Type: 
  Country: PT (occurrence: PT)
  Receive Date: 20121120
  Receipt Date: 20121129
  Transmission Date: 20130627
  Serious: Yes (Other)
  Sender: FDA-Public Use
  Company Number: PT-COVIDIEN/TYCO HEALTHCARE/MALLINCKRODT-T201204103

PATIENT
  Age: 62 Year
  Sex: Male
  Weight: 70 kg

DRUGS (9)
  1. EXALGO EXTENDED RELEASE [Suspect]
     Indication: CANCER PAIN
     Dosage: 8 mg, UNK
     Route: 048
     Dates: start: 20121104, end: 20121106
  2. EXALGO EXTENDED RELEASE [Suspect]
     Dosage: 4 mg, UNK
     Route: 048
     Dates: start: 20121025, end: 20121103
  3. ZOMETA [Concomitant]
     Indication: PROSTATE CANCER
     Dosage: 4 mg, in 3 week
     Route: 042
     Dates: start: 201209
  4. ZALDIAR / ULTRACET [Concomitant]
     Indication: PRODUCT USED FOR UNKNOWN INDICATION
     Dosage: UNK
     Dates: start: 201109, end: 20121022
  5. CALCITAB [Concomitant]
     Indication: METASTASES TO BONE
     Dosage: 1500 mg, UNK
     Route: 048
     Dates: start: 201210
  6. LORNOXICAM [Concomitant]
     Indication: CANCER PAIN
     Dosage: 8 mg, 1 in 12 hour
     Route: 048
     Dates: start: 20121022
  7. TRAMADOL [Concomitant]
     Indication: CANCER PAIN
     Dosage: 50 mg, 1 as necessary
     Route: 048
     Dates: start: 20121022
  8. BICALUTAMIDE [Concomitant]
     Indication: PROSTATE CANCER
     Dosage: 150 mg, UNK
     Route: 048
     Dates: start: 2011
  9. TRIPTORELIN [Concomitant]
     Indication: PROSTATE CANCER
     Dosage: 22.5 mg, in 6 month
     Route: 030
     Dates: start: 2011

REACTIONS (2)
  - Pruritus [Recovered/Resolved]
  - Generalised erythema [Recovered/Resolved]
